FAERS Safety Report 10146002 (Version 3)
Quarter: 2014Q2

REPORT INFORMATION
  Report Type: Report from Study
  Country: BE (occurrence: BE)
  Receive Date: 20140501
  Receipt Date: 20140505
  Transmission Date: 20141212
  Serious: Yes (Death, Hospitalization)
  Sender: FDA-Public Use
  Company Number: PHHY2014BE050010

PATIENT
  Age: 57 Year
  Sex: Female
  Weight: 71 kg

DRUGS (4)
  1. CGP 57148B [Suspect]
     Indication: GLIOBLASTOMA
     Dosage: 800 MG, DAILY
     Route: 048
     Dates: start: 20140416, end: 20140421
  2. AMLOR [Concomitant]
     Indication: HYPERTENSION
     Dosage: 5 MG, DAILY
     Dates: start: 20130410
  3. CITALOPRAM [Concomitant]
     Indication: DEPRESSION
     Dosage: 20 MG, DAILY
     Dates: start: 20130416
  4. L THYROXINE [Concomitant]
     Indication: HYPOTHYROIDISM
     Dosage: UNK UKN, UNK
     Dates: start: 2012

REACTIONS (6)
  - Glioblastoma [Fatal]
  - Malignant neoplasm progression [Fatal]
  - Diabetic coma [Recovered/Resolved]
  - Depressed level of consciousness [Not Recovered/Not Resolved]
  - Sepsis [Not Recovered/Not Resolved]
  - Pancreatitis [Not Recovered/Not Resolved]
